FAERS Safety Report 21652262 (Version 1)
Quarter: 2022Q4

REPORT INFORMATION
  Report Type: Spontaneous
  Country: US (occurrence: US)
  Receive Date: 20221128
  Receipt Date: 20221128
  Transmission Date: 20230112
  Serious: Yes (Hospitalization, Other)
  Sender: FDA-Public Use
  Company Number: US-PFIZER INC-202201325887

PATIENT
  Age: 77 Year
  Sex: Female
  Weight: 81.65 kg

DRUGS (3)
  1. XELJANZ XR [Suspect]
     Active Substance: TOFACITINIB CITRATE
     Indication: Rheumatoid arthritis
     Dosage: 11 MG, 1X/DAY
     Route: 048
     Dates: start: 202206
  2. DILTIAZEM [Suspect]
     Active Substance: DILTIAZEM
     Dosage: 240 MG, DAILY
     Route: 048
     Dates: start: 2021, end: 2022
  3. FUROSEMIDE [Concomitant]
     Active Substance: FUROSEMIDE
     Dosage: 20 MG, ALTERNATE DAY (EVERY OTHER DAY)
     Route: 048
     Dates: start: 2022

REACTIONS (2)
  - Pulmonary oedema [Recovered/Resolved]
  - Peripheral swelling [Unknown]

NARRATIVE: CASE EVENT DATE: 20220101
